FAERS Safety Report 9483700 (Version 1)
Quarter: 2013Q3

REPORT INFORMATION
  Report Type: Spontaneous
  Country: US (occurrence: US)
  Receive Date: 20130828
  Receipt Date: 20130828
  Transmission Date: 20140515
  Serious: No
  Sender: FDA-Public Use
  Company Number: US-BAYER-2013-102340

PATIENT
  Sex: Female
  Weight: 56.69 kg

DRUGS (6)
  1. BETASERON [Suspect]
     Indication: MULTIPLE SCLEROSIS
     Dosage: 0.25 MG, QOD
     Route: 058
     Dates: start: 1996, end: 201308
  2. DETROL LA [Concomitant]
  3. SERTRALINE [Concomitant]
  4. SOTALOL [Concomitant]
  5. BACLOFEN [Concomitant]
  6. CETRIZIN [Concomitant]

REACTIONS (1)
  - Injection site reaction [Unknown]
